FAERS Safety Report 25407688 (Version 1)
Quarter: 2025Q2

REPORT INFORMATION
  Report Type: Spontaneous
  Country: JP (occurrence: JP)
  Receive Date: 20250606
  Receipt Date: 20250606
  Transmission Date: 20250716
  Serious: Yes (Other)
  Sender: PFIZER
  Company Number: JP-ONO-2025JP009602

PATIENT
  Sex: Male

DRUGS (2)
  1. BRAFTOVI [Suspect]
     Active Substance: ENCORAFENIB
     Indication: Thyroid cancer
     Route: 048
     Dates: start: 202505
  2. MEKTOVI [Suspect]
     Active Substance: BINIMETINIB
     Indication: Thyroid cancer
     Route: 048
     Dates: start: 202505

REACTIONS (2)
  - Serous retinal detachment [Unknown]
  - Liver disorder [Unknown]

NARRATIVE: CASE EVENT DATE: 20250501
